FAERS Safety Report 23165500 (Version 2)
Quarter: 2023Q4

REPORT INFORMATION
  Report Type: Report from Study
  Country: CA (occurrence: CA)
  Receive Date: 20231109
  Receipt Date: 20231120
  Transmission Date: 20240109
  Serious: Yes (Death, Other)
  Sender: FDA-Public Use
  Company Number: CA-002147023-NVSC2021CA275688

PATIENT
  Age: 71 Year
  Sex: Male

DRUGS (2)
  1. SANDIMMUNE [Suspect]
     Active Substance: CYCLOSPORINE
     Indication: Immunosuppression
     Dosage: 25 MG (CAPSULE)
     Route: 048
     Dates: start: 1988
  2. SANDIMMUNE [Suspect]
     Active Substance: CYCLOSPORINE
     Dosage: 100 MG QAM + 75 MG QPM
     Route: 048
     Dates: start: 202309

REACTIONS (2)
  - Death [Fatal]
  - Nervous system disorder [Unknown]
